FAERS Safety Report 7914932-0 (Version None)
Quarter: 2011Q4

REPORT INFORMATION
  Report Type: 
  Country: None (occurrence: None)
  Receive Date: 20111115
  Receipt Date: 20111108
  Transmission Date: 20120403
  Serious: Yes (Other)
  Sender: FDA-Public Use
  Company Number: US-ABBOTT-11P-163-0872312-00

PATIENT
  Sex: Female
  Weight: 42.222 kg

DRUGS (3)
  1. HUMIRA [Suspect]
     Indication: CROHN'S DISEASE
     Dates: start: 20100401, end: 20110901
  2. HUMIRA [Suspect]
     Dates: end: 20111001
  3. HUMIRA [Suspect]
     Indication: CROHN'S DISEASE
     Dates: start: 20111003

REACTIONS (6)
  - ENDOMETRIOSIS [None]
  - CROHN'S DISEASE [None]
  - DRUG INEFFECTIVE [None]
  - FREQUENT BOWEL MOVEMENTS [None]
  - ABDOMINAL PAIN UPPER [None]
  - INCORRECT DOSE ADMINISTERED BY DEVICE [None]
